FAERS Safety Report 6753460-5 (Version None)
Quarter: 2010Q2

REPORT INFORMATION
  Report Type: 
  Country: None (occurrence: None)
  Receive Date: 20100603
  Receipt Date: 20100527
  Transmission Date: 20101027
  Serious: Yes (Other)
  Sender: FDA-Public Use
  Company Number: JP-JNJFOC-20100510452

PATIENT
  Sex: Female
  Weight: 39 kg

DRUGS (24)
  1. DUROTEP MT PATCH [Suspect]
     Indication: OSTEONECROSIS
     Route: 062
  2. DUROTEP MT PATCH [Suspect]
     Route: 062
  3. DUROTEP MT PATCH [Suspect]
     Route: 062
  4. DUROTEP MT PATCH [Suspect]
     Route: 062
  5. DUROTEP MT PATCH [Suspect]
     Route: 062
  6. DUROTEP MT PATCH [Suspect]
     Route: 062
  7. DUROTEP MT PATCH [Suspect]
     Route: 062
  8. DUROTEP MT PATCH [Suspect]
     Route: 062
  9. DUROTEP MT PATCH [Suspect]
     Route: 062
  10. DUROTEP MT PATCH [Suspect]
     Route: 062
  11. DUROTEP MT PATCH [Suspect]
     Route: 062
  12. DUROTEP MT PATCH [Suspect]
     Route: 062
  13. DUROTEP MT PATCH [Suspect]
     Route: 062
  14. FENTANYL [Concomitant]
     Indication: OSTEONECROSIS
     Route: 042
  15. PENTAZOCINE LACTATE [Concomitant]
     Indication: OSTEONECROSIS
     Route: 042
  16. SOLANTAL [Concomitant]
     Indication: ANALGESIC THERAPY
     Route: 048
  17. MAGMITT [Concomitant]
     Indication: PROPHYLAXIS
     Route: 048
  18. PRIMPERAN TAB [Concomitant]
     Indication: PROPHYLAXIS
     Route: 048
  19. ZYPREXA [Concomitant]
     Indication: PROPHYLAXIS
     Route: 048
  20. PROCHLORPERAZINE [Concomitant]
     Indication: PROPHYLAXIS
     Route: 048
  21. LECICARBON [Concomitant]
     Indication: CONSTIPATION
     Route: 054
  22. OPSO [Concomitant]
     Indication: ANALGESIC THERAPY
     Route: 048
  23. MORPHINE HYDROCHLORIDE [Concomitant]
     Indication: ANALGESIC THERAPY
     Route: 048
  24. LAXOBERON [Concomitant]
     Indication: PROPHYLAXIS
     Route: 048

REACTIONS (4)
  - EATING DISORDER [None]
  - NAUSEA [None]
  - VOMITING [None]
  - WRONG TECHNIQUE IN DRUG USAGE PROCESS [None]
